FAERS Safety Report 12588798 (Version 1)
Quarter: 2016Q3

REPORT INFORMATION
  Report Type: Spontaneous
  Country: US (occurrence: US)
  Receive Date: 20160725
  Receipt Date: 20160725
  Transmission Date: 20161109
  Serious: No
  Sender: FDA-Public Use
  Company Number: US-JNJFOC-20160615689

PATIENT
  Age: 90 Year
  Sex: Female
  Weight: 68.49 kg

DRUGS (6)
  1. PREDNISONE. [Concomitant]
     Active Substance: PREDNISONE
     Indication: PULMONARY FIBROSIS
     Dosage: 1 PER DAY, 1-2 MONTHS
     Route: 065
  2. POTASSIUM [Concomitant]
     Active Substance: POTASSIUM
     Indication: NUTRITIONAL SUPPLEMENTATION
     Dosage: 2 PER DAY
     Route: 065
  3. VENTOLIN [Concomitant]
     Active Substance: ALBUTEROL SULFATE
     Indication: PULMONARY FIBROSIS
     Dosage: 2 PUFFS/2X PER DAY, 1-2 MONTHS
     Route: 065
  4. LOSARTAN. [Concomitant]
     Active Substance: LOSARTAN
     Indication: HYPERTENSION
     Dosage: 1 PER DAY
     Route: 065
  5. TYLENOL EXTRA STRENGTH [Suspect]
     Active Substance: ACETAMINOPHEN
     Indication: PELVIC FRACTURE
     Dosage: 1 TABLET IN THE MORNING AND 1 IN THE EVENING.
     Route: 048
     Dates: start: 201606, end: 20160614
  6. MULTI VITAMIN [Concomitant]
     Active Substance: VITAMINS
     Indication: MACULAR DEGENERATION
     Dosage: 1 PER DAY SINCE 1 YEAR
     Route: 065

REACTIONS (4)
  - Off label use [Unknown]
  - Joint swelling [Not Recovered/Not Resolved]
  - Product use issue [Unknown]
  - Product packaging issue [Unknown]

NARRATIVE: CASE EVENT DATE: 201606
